FAERS Safety Report 5024724-0 (Version None)
Quarter: 2006Q2

REPORT INFORMATION
  Report Type: 
  Country: None (occurrence: None)
  Receive Date: 20060426
  Receipt Date: 20060224
  Transmission Date: 20061013
  Serious: Yes (Other)
  Sender: FDA-Public Use
  Company Number: 2006030228

PATIENT
  Age: 61 Year
  Sex: Female
  Weight: 68.0396 kg

DRUGS (8)
  1. LYRICA [Suspect]
     Indication: NERVE INJURY
     Dosage: 100 MG (50 MG, 2 IN 1 D), ORAL
     Route: 048
     Dates: start: 20051201
  2. INDERAL [Concomitant]
  3. WELLBUTRIN [Concomitant]
  4. HYDROXYZINE [Concomitant]
  5. LORAZEPAM [Concomitant]
  6. LEXAPRO [Concomitant]
  7. TYLENOL W/ CODEINE NO. 3 [Concomitant]
  8. BUTALBITAL [Concomitant]

REACTIONS (5)
  - CONFUSIONAL STATE [None]
  - DEPRESSION [None]
  - DIZZINESS [None]
  - DRUG EFFECT DECREASED [None]
  - SPEECH DISORDER [None]
